FAERS Safety Report 16056864 (Version 3)
Quarter: 2019Q2

REPORT INFORMATION
  Report Type: Report from Study
  Country: CA (occurrence: CA)
  Receive Date: 20190311
  Receipt Date: 20190410
  Transmission Date: 20190711
  Serious: Yes (Hospitalization, Other)
  Sender: FDA-Public Use
  Company Number: CA-ROCHE-2244978

PATIENT
  Age: 70 Year
  Sex: Female
  Weight: 78 kg

DRUGS (1)
  1. ACTEMRA [Suspect]
     Active Substance: TOCILIZUMAB
     Indication: TEMPORAL ARTERITIS
     Route: 042
     Dates: start: 20190108, end: 20190205

REACTIONS (15)
  - Hypertension [Unknown]
  - Weight increased [Unknown]
  - Memory impairment [Not Recovered/Not Resolved]
  - Blood pressure systolic increased [Unknown]
  - Blood pressure systolic abnormal [Unknown]
  - Pain in extremity [Unknown]
  - Joint swelling [Not Recovered/Not Resolved]
  - Blood pressure increased [Unknown]
  - Burning sensation [Not Recovered/Not Resolved]
  - Blood pressure diastolic increased [Unknown]
  - Dementia Alzheimer^s type [Not Recovered/Not Resolved]
  - Headache [Unknown]
  - Pain in extremity [Not Recovered/Not Resolved]
  - Vision blurred [Unknown]
  - Infusion related reaction [Unknown]

NARRATIVE: CASE EVENT DATE: 20190108
